FAERS Safety Report 26017614 (Version 1)
Quarter: 2025Q4

REPORT INFORMATION
  Report Type: Spontaneous
  Country: US (occurrence: US)
  Receive Date: 20251110
  Receipt Date: 20251110
  Transmission Date: 20260117
  Serious: Yes (Death, Other)
  Sender: AUROBINDO
  Company Number: US-AUROBINDO-AUR-APL-2025-055644

PATIENT
  Age: 37 Year
  Sex: Male

DRUGS (1)
  1. PREGABALIN [Suspect]
     Active Substance: PREGABALIN
     Indication: Product used for unknown indication
     Dosage: UNK
     Route: 065

REACTIONS (3)
  - Death [Fatal]
  - Poisoning [Unknown]
  - Drug screen positive [Unknown]
